FAERS Safety Report 12928354 (Version 3)
Quarter: 2016Q4

REPORT INFORMATION
  Report Type: Spontaneous
  Country: JP (occurrence: JP)
  Receive Date: 20161110
  Receipt Date: 20161117
  Transmission Date: 20170207
  Serious: Yes (Other)
  Sender: FDA-Public Use
  Company Number: JP-ROCHE-1852554

PATIENT
  Age: 80 Year
  Sex: Female
  Weight: 40 kg

DRUGS (9)
  1. LOXOPROFEN [Concomitant]
     Active Substance: LOXOPROFEN
     Dosage: THE FRACTIONATION DOSE FREQUENCY IS UNCERTAIN. ?DOSE INTERVAL UNCERTAINTY
     Route: 048
  2. IRSOGLADINE MALEATE [Concomitant]
     Active Substance: IRSOGLADINE MALEATE
     Route: 048
  3. AMITRIPTYLINE [Concomitant]
     Active Substance: AMITRIPTYLINE
     Dosage: THE FRACTIONATION DOSE FREQUENCY IS UNCERTAIN. ?DOSE INTERVAL UNCERTAINTY
     Route: 048
  4. LANDSEN [Suspect]
     Active Substance: CLONAZEPAM
     Indication: PAIN
     Route: 048
  5. LANDSEN [Suspect]
     Active Substance: CLONAZEPAM
     Route: 048
  6. LIDOCAINE. [Concomitant]
     Active Substance: LIDOCAINE
     Route: 041
  7. TIZANIDINE. [Concomitant]
     Active Substance: TIZANIDINE
     Route: 048
  8. BACLOFEN. [Concomitant]
     Active Substance: BACLOFEN
     Route: 048
  9. PREGABALIN. [Concomitant]
     Active Substance: PREGABALIN
     Route: 048

REACTIONS (1)
  - Cerebral haemorrhage [Unknown]
